FAERS Safety Report 24267313 (Version 1)
Quarter: 2024Q3

REPORT INFORMATION
  Report Type: Spontaneous
  Country: IR (occurrence: IR)
  Receive Date: 20240830
  Receipt Date: 20240830
  Transmission Date: 20241016
  Serious: Yes (Other)
  Sender: RANBAXY
  Company Number: IR-SUN PHARMACEUTICAL INDUSTRIES LTD-2024RR-465001

PATIENT
  Age: 51 Year
  Sex: Female

DRUGS (8)
  1. METHOTREXATE [Suspect]
     Active Substance: METHOTREXATE
     Indication: Rheumatoid arthritis
     Dosage: 7.5 MILLIGRAM, WEEKLY
     Route: 048
  2. PREDNISOLONE [Suspect]
     Active Substance: PREDNISOLONE
     Indication: Rheumatoid arthritis
     Dosage: 5 MILLIGRAM, DAILY
     Route: 048
  3. REMDESIVIR [Suspect]
     Active Substance: REMDESIVIR
     Indication: COVID-19
     Dosage: 200MG STAT AND THEN 100 MG/ DAILY
     Route: 040
  4. METHYLPREDNISOLONE [Suspect]
     Active Substance: METHYLPREDNISOLONE
     Indication: COVID-19
     Dosage: 250MG
     Route: 040
  5. VORICONAZOLE [Interacting]
     Active Substance: VORICONAZOLE
     Indication: Tuberculosis
     Dosage: 400 MG
     Route: 040
  6. VORICONAZOLE [Interacting]
     Active Substance: VORICONAZOLE
     Dosage: 200 MILLIGRAM, BID
     Route: 040
  7. RIFAMPIN [Suspect]
     Active Substance: RIFAMPIN
     Indication: Tuberculosis
  8. DEXAMETHASONE [Suspect]
     Active Substance: DEXAMETHASONE
     Indication: COVID-19
     Dosage: 8 MG/IV/ DAILY
     Route: 040

REACTIONS (6)
  - COVID-19 [Unknown]
  - Off label use [Unknown]
  - Pneumonia necrotising [Unknown]
  - Bronchopulmonary aspergillosis [Unknown]
  - Tuberculosis [Unknown]
  - Drug interaction [Unknown]
